FAERS Safety Report 19263149 (Version 1)
Quarter: 2021Q2

REPORT INFORMATION
  Report Type: Spontaneous
  Country: GB (occurrence: GB)
  Receive Date: 20210517
  Receipt Date: 20210517
  Transmission Date: 20210717
  Serious: No
  Sender: FDA-Public Use
  Company Number: GB-ALKEM LABORATORIES LIMITED-GB-ALKEM-2021-01312

PATIENT

DRUGS (26)
  1. DULOXETINE. [Concomitant]
     Active Substance: DULOXETINE
     Dosage: TAKE ONE DAILY
     Route: 065
     Dates: start: 20201229
  2. ATORVASTATIN [Concomitant]
     Active Substance: ATORVASTATIN
     Dosage: 1 DOSAGE FORM
     Route: 065
     Dates: start: 20201203, end: 20201229
  3. ATORVASTATIN [Concomitant]
     Active Substance: ATORVASTATIN
     Dosage: 1 DOSAGE FORM, OD
     Route: 065
     Dates: start: 20201203
  4. CETIRIZINE [Concomitant]
     Active Substance: CETIRIZINE HYDROCHLORIDE
     Indication: PRODUCT USED FOR UNKNOWN INDICATION
     Dosage: 1 DOSAGE FORM, OD
     Route: 065
     Dates: start: 20201229
  5. DULOXETINE. [Concomitant]
     Active Substance: DULOXETINE
     Dosage: 1 EVERY DAY
     Route: 065
     Dates: start: 20201203
  6. PARACETAMOL [Concomitant]
     Active Substance: ACETAMINOPHEN
     Dosage: TAKE 1 OR 2 UP TO FOUR TIMES A DAY WHEN REQUIRED
     Route: 065
     Dates: start: 20201229
  7. PREGABALIN. [Suspect]
     Active Substance: PREGABALIN
     Indication: PRODUCT USED FOR UNKNOWN INDICATION
     Dosage: UNK
     Route: 048
  8. ATORVASTATIN [Concomitant]
     Active Substance: ATORVASTATIN
     Indication: PRODUCT USED FOR UNKNOWN INDICATION
     Dosage: 1 DOSAGE FORM, OD
     Route: 065
     Dates: start: 20201229, end: 20210125
  9. CETIRIZINE [Concomitant]
     Active Substance: CETIRIZINE HYDROCHLORIDE
     Dosage: 1 DOSAGE FORM, OD
     Route: 065
     Dates: start: 20201203
  10. DULOXETINE. [Concomitant]
     Active Substance: DULOXETINE
     Dosage: TAKE ONE DAILY
     Route: 065
     Dates: start: 20201203
  11. PARACETAMOL [Concomitant]
     Active Substance: ACETAMINOPHEN
     Dosage: TAKE 1 OR 2 UP TO FOUR TIMES A DAY WHEN REQUIRED
     Route: 065
     Dates: start: 20210126
  12. CETIRIZINE [Concomitant]
     Active Substance: CETIRIZINE HYDROCHLORIDE
     Dosage: 1 DOSAGE FORM, OD
     Route: 065
     Dates: start: 20201203, end: 20201229
  13. DULOXETINE. [Concomitant]
     Active Substance: DULOXETINE
     Indication: PRODUCT USED FOR UNKNOWN INDICATION
     Dosage: 1 EVERY DAY
     Route: 065
     Dates: start: 20201203, end: 20201229
  14. ATORVASTATIN [Concomitant]
     Active Substance: ATORVASTATIN
     Dosage: 1 DOSAGE FORM
     Route: 065
     Dates: start: 20210126
  15. ATORVASTATIN [Concomitant]
     Active Substance: ATORVASTATIN
     Dosage: 1 DOSAGE FORM
     Route: 065
     Dates: start: 20201229
  16. DULOXETINE. [Concomitant]
     Active Substance: DULOXETINE
     Dosage: 1 EVERY DAY
     Route: 065
     Dates: start: 20201229
  17. PARACETAMOL [Concomitant]
     Active Substance: ACETAMINOPHEN
     Dosage: TAKE 1 OR 2 UP TO FOUR TIMES A DAY WHEN REQUIRED
     Route: 065
     Dates: start: 20201229, end: 20210125
  18. PARACETAMOL [Concomitant]
     Active Substance: ACETAMINOPHEN
     Dosage: TAKE 1 OR 2 UP TO FOUR TIMES A DAY WHEN REQUIRED
     Route: 065
     Dates: start: 20201203, end: 20201229
  19. DULOXETINE. [Concomitant]
     Active Substance: DULOXETINE
     Dosage: TAKE ONE DAILY
     Route: 065
     Dates: start: 20210126
  20. PARACETAMOL [Concomitant]
     Active Substance: ACETAMINOPHEN
     Indication: PRODUCT USED FOR UNKNOWN INDICATION
     Dosage: TAKE 1 OR 2 UP TO FOUR TIMES A DAY WHEN REQUIRED
     Route: 065
     Dates: start: 20201203
  21. CETIRIZINE [Concomitant]
     Active Substance: CETIRIZINE HYDROCHLORIDE
     Dosage: 1 DOSAGE FORM
     Route: 065
     Dates: start: 20210126
  22. DULOXETINE. [Concomitant]
     Active Substance: DULOXETINE
     Dosage: 1 EVERY DAY
     Route: 065
     Dates: start: 20201229, end: 20210125
  23. CETIRIZINE [Concomitant]
     Active Substance: CETIRIZINE HYDROCHLORIDE
     Dosage: 1 DOSAGE FORM, OD
     Route: 065
     Dates: start: 20201229, end: 20210125
  24. DULOXETINE. [Concomitant]
     Active Substance: DULOXETINE
     Dosage: 1 EVERY DAY
     Route: 065
     Dates: start: 20210126
  25. DULOXETINE. [Concomitant]
     Active Substance: DULOXETINE
     Dosage: TAKE ONE DAILY
     Route: 065
     Dates: start: 20201229, end: 20210125
  26. DULOXETINE. [Concomitant]
     Active Substance: DULOXETINE
     Dosage: TAKE ONE DAILY
     Route: 065
     Dates: start: 20201203, end: 20201229

REACTIONS (1)
  - Adverse drug reaction [Recovering/Resolving]
